FAERS Safety Report 5018108-9 (Version None)
Quarter: 2006Q2

REPORT INFORMATION
  Report Type: 
  Country: None (occurrence: None)
  Receive Date: 20060525
  Receipt Date: 20060502
  Transmission Date: 20061013
  Serious: Yes (Death, Hospitalization)
  Sender: FDA-Public Use
  Company Number: US200603005387

PATIENT
  Age: 64 Year
  Sex: Female

DRUGS (11)
  1. TERIPARATIDE(TERIPARATIDE) PEN, DISPOSABLE [Suspect]
     Indication: OSTEOPOROSIS
     Dosage: 20 UG, DAILY (1/D), SUBCUTANEOUS
     Route: 058
     Dates: start: 20050907
  2. FORTEO [Concomitant]
  3. PROCRIT [Concomitant]
  4. POTASSIUM (POTASSIUM) [Concomitant]
  5. LASIX [Concomitant]
  6. LIPITOR [Concomitant]
  7. IMDUR [Concomitant]
  8. LOPRESSOR [Concomitant]
  9. PEPCID [Concomitant]
  10. ATIVAN [Concomitant]
  11. PERCOCET [Concomitant]

REACTIONS (4)
  - CELLULITIS [None]
  - RENAL FAILURE [None]
  - THROMBOCYTOPENIA [None]
  - VENTRICULAR ARRHYTHMIA [None]
